FAERS Safety Report 4506742-1 (Version None)
Quarter: 2004Q4

REPORT INFORMATION
  Report Type: 
  Country: None (occurrence: None)
  Receive Date: 20041117
  Receipt Date: 20041101
  Transmission Date: 20050328
  Serious: Yes (Hospitalization)
  Sender: FDA-Public Use
  Company Number: 207154

PATIENT
  Age: 54 Year
  Sex: Female
  Weight: 58.514 kg

DRUGS (6)
  1. AVONEX [Suspect]
     Indication: MULTIPLE SCLEROSIS
     Dosage: 30 MCG QW IM
     Route: 030
     Dates: start: 20000101, end: 20010101
  2. ROBAXIN [Concomitant]
  3. METHADONE [Concomitant]
  4. PRINIVIL [Concomitant]
  5. PLAVIX [Concomitant]
  6. EFFEXOR [Concomitant]

REACTIONS (3)
  - BLOOD POTASSIUM DECREASED [None]
  - CONVULSION [None]
  - VOMITING [None]
